FAERS Safety Report 6383990-X (Version None)
Quarter: 2010Q1

REPORT INFORMATION
  Report Type: 
  Country: None (occurrence: None)
  Receive Date: 20091001
  Receipt Date: 20090924
  Transmission Date: 20100710
  Serious: Yes (Other)
  Sender: FDA-Public Use
  Company Number: US-JNJFOC-20090907854

PATIENT
  Age: 14 Month
  Sex: Male
  Weight: 11.79 kg

DRUGS (1)
  1. CHILDREN'S TYLENOL PLUS MULTI-SYMPTOM COLD [Suspect]
     Indication: NASOPHARYNGITIS
     Dosage: AT NIGHT
     Route: 048

REACTIONS (3)
  - FEBRILE CONVULSION [None]
  - PYREXIA [None]
  - WRONG DRUG ADMINISTERED [None]
